FAERS Safety Report 23713420 (Version 1)
Quarter: 2024Q2

REPORT INFORMATION
  Report Type: Spontaneous
  Country: BE (occurrence: BE)
  Receive Date: 20240405
  Receipt Date: 20240405
  Transmission Date: 20240716
  Serious: Yes (Disabling)
  Sender: FDA-Public Use
  Company Number: None

PATIENT
  Age: 29 Year
  Sex: Female
  Weight: 54 kg

DRUGS (1)
  1. DROSPIRENONE [Suspect]
     Active Substance: DROSPIRENONE
     Indication: Contraception
     Dosage: UNK
     Route: 048
     Dates: start: 20240101, end: 20240311

REACTIONS (4)
  - Affect lability [Recovered/Resolved]
  - Irritability [Recovered/Resolved]
  - Insomnia [Recovered/Resolved]
  - Frustration tolerance decreased [Recovered/Resolved]
